FAERS Safety Report 23355923 (Version 1)
Quarter: 2024Q1

REPORT INFORMATION
  Report Type: Spontaneous
  Country: US (occurrence: US)
  Receive Date: 20240102
  Receipt Date: 20240102
  Transmission Date: 20240409
  Serious: No
  Sender: FDA-Public Use
  Company Number: US-VALIDUS PHARMACEUTICALS LLC-US-VDP-2023-015977

PATIENT

DRUGS (2)
  1. DESIPRAMINE [Suspect]
     Active Substance: DESIPRAMINE
     Indication: Pain
     Dosage: 10 MILLIGRAM, QD (5 TO 6 TABLETS A DAY)
     Route: 065
     Dates: start: 1994
  2. DESIPRAMINE HYDROCHLORIDE [Suspect]
     Active Substance: DESIPRAMINE HYDROCHLORIDE
     Indication: Pain
     Dosage: 10 MILLIGRAM, QD (5 TO 6 TABLETS A DAY)
     Route: 065
     Dates: start: 1994

REACTIONS (1)
  - Illness [Unknown]
